FAERS Safety Report 21579141 (Version 1)
Quarter: 2022Q4

REPORT INFORMATION
  Report Type: Spontaneous
  Country: PL (occurrence: PL)
  Receive Date: 20221110
  Receipt Date: 20221110
  Transmission Date: 20230113
  Serious: Yes (Other)
  Sender: FDA-Public Use
  Company Number: PL-BRISTOL-MYERS SQUIBB COMPANY-2022-134263

PATIENT
  Age: 50 Year
  Sex: Male

DRUGS (2)
  1. OPDIVO [Suspect]
     Active Substance: NIVOLUMAB
     Indication: Clear cell renal cell carcinoma
     Dosage: DOSE : OPDIVO 3MG/KG    FREQ : EVERY 3 WEEKS
     Route: 065
     Dates: start: 2022
  2. YERVOY [Suspect]
     Active Substance: IPILIMUMAB
     Indication: Clear cell renal cell carcinoma
     Route: 065
     Dates: start: 2022

REACTIONS (7)
  - Hepatic failure [Unknown]
  - Thyroid disorder [Unknown]
  - Pneumonia [Unknown]
  - Gastrointestinal inflammation [Unknown]
  - Hypopituitarism [Unknown]
  - Adrenal insufficiency [Unknown]
  - Skin disorder [Unknown]

NARRATIVE: CASE EVENT DATE: 20220101
